FAERS Safety Report 25041409 (Version 2)
Quarter: 2025Q2

REPORT INFORMATION
  Report Type: Report from Study
  Country: US (occurrence: US)
  Receive Date: 20250305
  Receipt Date: 20250402
  Transmission Date: 20250716
  Serious: Yes (Other)
  Sender: ACADIA PHARMACEUTICALS
  Company Number: US-ACADIA PHARMACEUTICALS INC.-ACA-2025-PIM-001914

PATIENT
  Sex: Male

DRUGS (21)
  1. NUPLAZID [Suspect]
     Active Substance: PIMAVANSERIN TARTRATE
     Indication: Parkinson^s disease psychosis
     Dosage: 34 MILLIGRAM, QD
     Route: 048
     Dates: start: 202303
  2. MIRALAX [Concomitant]
     Active Substance: POLYETHYLENE GLYCOL 3350
  3. TAMSULOSIN HYDROCHLORIDE [Concomitant]
     Active Substance: TAMSULOSIN HYDROCHLORIDE
  4. OMEPRAZOLE [Concomitant]
     Active Substance: OMEPRAZOLE
  5. VITAMIN B COMPLEX [Concomitant]
     Active Substance: CYANOCOBALAMIN\DEXPANTHENOL\NIACINAMIDE\PYRIDOXINE HYDROCHLORIDE\RIBOFLAVIN 5^-PHOSPHATE SODIUM\THIA
  6. PSYLLIUM [PLANTAGO INDICA] [Concomitant]
  7. CURCUMIN [Concomitant]
     Active Substance: CURCUMIN
  8. AMLODIPINE [Concomitant]
     Active Substance: AMLODIPINE BESYLATE
  9. DONEPEZIL [Concomitant]
     Active Substance: DONEPEZIL
  10. ACETAMINOPHEN [Concomitant]
     Active Substance: ACETAMINOPHEN
  11. COLACE [Concomitant]
     Active Substance: DOCUSATE SODIUM
  12. VITAMINS [Concomitant]
     Active Substance: VITAMINS
  13. TADALAFIL [Concomitant]
     Active Substance: TADALAFIL
  14. SERTRALINE [Concomitant]
     Active Substance: SERTRALINE HYDROCHLORIDE
  15. PROBIOTICS NOS [Concomitant]
     Active Substance: PROBIOTICS NOS
  16. LISINOPRIL [Concomitant]
     Active Substance: LISINOPRIL
  17. FISH OIL [Concomitant]
     Active Substance: FISH OIL
  18. CALCIUM [Concomitant]
     Active Substance: CALCIUM
  19. CARBIDOPA AND LEVODOPA [Concomitant]
     Active Substance: CARBIDOPA\LEVODOPA
  20. BUPROPION [Concomitant]
     Active Substance: BUPROPION
  21. MYOLAX [NIFEDIPINE] [Concomitant]

REACTIONS (1)
  - Hallucination, visual [Not Recovered/Not Resolved]
